FAERS Safety Report 4566637-4 (Version None)
Quarter: 2005Q1

REPORT INFORMATION
  Report Type: 
  Country: None (occurrence: None)
  Receive Date: 20050201
  Receipt Date: 20050126
  Transmission Date: 20050727
  Serious: Yes (Life-Threatening, Hospitalization, Disabling)
  Sender: FDA-Public Use
  Company Number: US-MERCK-0501USA04097

PATIENT
  Age: 61 Year
  Sex: Female

DRUGS (9)
  1. VIOXX [Suspect]
     Indication: ARTHRITIS
     Route: 048
     Dates: start: 20040604, end: 20040624
  2. VIOXX [Suspect]
     Indication: INTERVERTEBRAL DISC PROTRUSION
     Route: 048
     Dates: start: 20040604, end: 20040624
  3. LEXAPRO [Concomitant]
     Route: 065
  4. SYNTHROID [Concomitant]
     Route: 065
  5. ESTRATEST [Concomitant]
     Route: 065
  6. VERAPAMIL [Concomitant]
     Route: 065
  7. PRINIVIL [Concomitant]
     Route: 048
  8. ZOLOFT [Concomitant]
     Route: 065
  9. CLONAZEPAM [Concomitant]
     Route: 065

REACTIONS (2)
  - CHEST PAIN [None]
  - JOINT SWELLING [None]
